FAERS Safety Report 7674252 (Version 3)
Quarter: 2013Q2

REPORT INFORMATION
  Report Type: Spontaneous
  Country: MX (occurrence: MX)
  Receive Date: 20101118
  Receipt Date: 20130605
  Transmission Date: 20140414
  Serious: Yes (Other)
  Sender: FDA-Public Use
  Company Number: PHHY2010MX64301

PATIENT
  Age: 91 Year
  Sex: Female

DRUGS (4)
  1. RASILEZ HCT [Suspect]
     Indication: HYPERTENSION
     Dosage: 1 DF, DAILY
     Route: 048
     Dates: end: 20100909
  2. GALVUS MET [Concomitant]
     Dosage: UNK UKN, UNK
  3. AROPAX [Concomitant]
     Indication: SLEEP DISORDER
     Dosage: UNK UKN, UNK
  4. EXFORGE [Concomitant]
     Dosage: UNK UKN, UNK

REACTIONS (5)
  - Syncope [Recovered/Resolved]
  - Dehydration [Recovered/Resolved]
  - Skeletal injury [Recovered/Resolved]
  - Blood pressure inadequately controlled [Recovered/Resolved]
  - Decreased appetite [Recovered/Resolved]
